FAERS Safety Report 17834604 (Version 2)
Quarter: 2020Q3

REPORT INFORMATION
  Report Type: Spontaneous
  Country: ES (occurrence: ES)
  Receive Date: 20200528
  Receipt Date: 20200725
  Transmission Date: 20201103
  Serious: Yes (Hospitalization)
  Sender: FDA-Public Use
  Company Number: ES-MACLEODS PHARMA UK LTD-MAC2020026603

PATIENT

DRUGS (1)
  1. OLMESARTAN 40MG [Suspect]
     Active Substance: OLMESARTAN
     Indication: HYPERTENSION
     Dosage: 40 MILLIGRAM
     Route: 065

REACTIONS (5)
  - Colitis [Recovering/Resolving]
  - Enteritis [Recovering/Resolving]
  - Gastrointestinal disorder [Recovering/Resolving]
  - Metabolic acidosis [Recovering/Resolving]
  - Prerenal failure [Recovering/Resolving]
